FAERS Safety Report 8989487 (Version 3)
Quarter: 2013Q1

REPORT INFORMATION
  Report Type: Report from Study
  Country: US (occurrence: US)
  Receive Date: 20121227
  Receipt Date: 20130108
  Transmission Date: 20140127
  Serious: Yes (Hospitalization)
  Sender: FDA-Public Use
  Company Number: US-ACTELION-A-NJ2012-75426

PATIENT
  Age: 72 Year
  Sex: Female

DRUGS (2)
  1. VELETRI [Suspect]
     Indication: PULMONARY ARTERIAL HYPERTENSION
     Dosage: 90 NG/KG, PER MIN
     Route: 041
     Dates: start: 20110316
  2. SILDENAFIL [Concomitant]

REACTIONS (19)
  - Colon polypectomy [Unknown]
  - Anaemia [Unknown]
  - Blood product transfusion [Unknown]
  - Blood count abnormal [Unknown]
  - Blood pressure abnormal [Unknown]
  - Dyspnoea [Unknown]
  - Device occlusion [Unknown]
  - Weight decreased [Unknown]
  - Ageusia [Unknown]
  - Drug dose omission [Unknown]
  - Device leakage [Unknown]
  - Dizziness [Unknown]
  - Nausea [Unknown]
  - Pain in jaw [Unknown]
  - Diarrhoea [Unknown]
  - Rash [Unknown]
  - Nocturnal dyspnoea [Unknown]
  - Heart rate increased [Unknown]
  - Device infusion issue [Unknown]
